FAERS Safety Report 12881072 (Version 1)
Quarter: 2016Q4

REPORT INFORMATION
  Report Type: Spontaneous
  Country: US (occurrence: US)
  Receive Date: 20161025
  Receipt Date: 20161025
  Transmission Date: 20170207
  Serious: Yes (Death)
  Sender: FDA-Public Use
  Company Number: None

PATIENT
  Age: 104 Year
  Sex: Female
  Weight: 45.4 kg

DRUGS (1)
  1. HYOSCYAMINE 0.125MG SUBLINGUAL TABS VIIRTUS [Suspect]
     Active Substance: HYOSCYAMINE SULFATE
     Indication: COUGH
     Route: 060
     Dates: start: 20160707, end: 20160814

REACTIONS (2)
  - Dizziness [None]
  - Dysphagia [None]

NARRATIVE: CASE EVENT DATE: 20160707
